FAERS Safety Report 9397804 (Version 1)
Quarter: 2013Q3

REPORT INFORMATION
  Report Type: Spontaneous
  Country: US (occurrence: US)
  Receive Date: 20130712
  Receipt Date: 20130712
  Transmission Date: 20140515
  Serious: No
  Sender: FDA-Public Use
  Company Number: US-B.I. PHARMACEUTICALS,INC./RIDGEFIELD-2013-BI-20264BP

PATIENT
  Sex: Male

DRUGS (2)
  1. PRADAXA [Suspect]
     Indication: ATRIAL FIBRILLATION
     Dosage: 300 MG
     Route: 048
  2. UNSPECIFIED MEDICATION [Concomitant]
     Indication: HYPERTENSION
     Route: 048

REACTIONS (5)
  - Thyroid mass [Not Recovered/Not Resolved]
  - Renal disorder [Not Recovered/Not Resolved]
  - Tooth socket haemorrhage [Not Recovered/Not Resolved]
  - Hypotension [Recovered/Resolved]
  - Dental caries [Recovered/Resolved]
